FAERS Safety Report 15656421 (Version 1)
Quarter: 2018Q4

REPORT INFORMATION
  Report Type: Spontaneous
  Country: US (occurrence: US)
  Receive Date: 20181126
  Receipt Date: 20181126
  Transmission Date: 20190205
  Serious: Yes (Hospitalization, Disabling, Other)
  Sender: FDA-Public Use
  Company Number: US-JNJFOC-20181129147

PATIENT
  Age: 48 Year
  Sex: Female

DRUGS (2)
  1. INVOKANA [Suspect]
     Active Substance: CANAGLIFLOZIN
     Indication: TYPE 2 DIABETES MELLITUS
     Route: 048
     Dates: start: 20141229
  2. LASIX [Suspect]
     Active Substance: FUROSEMIDE
     Indication: PRODUCT USED FOR UNKNOWN INDICATION
     Route: 048
     Dates: end: 201509

REACTIONS (7)
  - Cellulitis [Recovering/Resolving]
  - Diabetic ulcer [Recovering/Resolving]
  - Sepsis [Recovering/Resolving]
  - Limb amputation [Recovering/Resolving]
  - Skin ulcer [Recovering/Resolving]
  - Osteomyelitis [Not Recovered/Not Resolved]
  - Neuropathic arthropathy [Recovering/Resolving]

NARRATIVE: CASE EVENT DATE: 201502
